FAERS Safety Report 8101298-9 (Version None)
Quarter: 2012Q1

REPORT INFORMATION
  Report Type: 
  Country: None (occurrence: None)
  Receive Date: 20120129
  Receipt Date: 20110928
  Transmission Date: 20120608
  Serious: No
  Sender: FDA-Public Use
  Company Number: US-ABBOTT-11P-163-0858974-00

PATIENT
  Age: 45 Year
  Sex: Female

DRUGS (4)
  1. LEVOXYL [Concomitant]
     Indication: HYPOTHYROIDISM
     Dates: start: 19930101
  2. HUMIRA [Suspect]
     Indication: CROHN'S DISEASE
     Dosage: DAY 1
     Dates: start: 20110908
  3. HUMIRA [Suspect]
     Dosage: DAY 15
  4. HUMIRA [Suspect]

REACTIONS (3)
  - PRURITUS [None]
  - RECTAL DISCHARGE [None]
  - DIARRHOEA [None]
